FAERS Safety Report 24381849 (Version 1)
Quarter: 2024Q4

REPORT INFORMATION
  Report Type: Spontaneous
  Country: US (occurrence: US)
  Receive Date: 20241001
  Receipt Date: 20241001
  Transmission Date: 20250114
  Serious: No
  Sender: ROCHE
  Company Number: US-ROCHE-10000094678

PATIENT
  Age: 53 Year
  Sex: Female

DRUGS (1)
  1. OCREVUS [Suspect]
     Active Substance: OCRELIZUMAB
     Indication: Product used for unknown indication
     Dosage: ONGOING: YES
     Route: 065
     Dates: start: 20240911

REACTIONS (2)
  - Hypotension [Recovered/Resolved]
  - Ear discomfort [Recovering/Resolving]

NARRATIVE: CASE EVENT DATE: 20240911
